FAERS Safety Report 10373684 (Version 1)
Quarter: 2014Q1

REPORT INFORMATION
  Report Type: Spontaneous
  Country: US (occurrence: None)
  Receive Date: 20140306
  Receipt Date: 20140306
  Transmission Date: 20141002
  Serious: Yes (Other)
  Sender: FDA-Public Use
  Company Number: 163-21880-13072304

PATIENT
  Age: 84 Year
  Sex: Female
  Weight: 70.3 kg

DRUGS (9)
  1. REVLIMID (LENALIDOMIDE) (15 MILLIGRAM, CAPSULES) [Suspect]
     Indication: PLASMA CELL MYELOMA
     Dosage: 15 MG, 21 IN 28 D, PO
     Route: 048
     Dates: start: 20130514
  2. DEXAMETHASONE (TABLETS) [Concomitant]
  3. WARFARIN SODIUM (TABLETS) [Concomitant]
  4. XALATAN (LATANOPROST) (DROPS) [Concomitant]
  5. METOPROLOL TARTRATE (TABLETS) [Concomitant]
  6. LOVASTATIN (TABLETS) [Concomitant]
  7. LEVOTHYROXINE (TABLETS) [Concomitant]
  8. SANCTURA (TROSPIUM CHLORIDE) (TABLETS) [Concomitant]
  9. COUMADIN (WARFARIN SODIUM) (TABLETS) [Concomitant]

REACTIONS (5)
  - Hypotension [None]
  - Muscular weakness [None]
  - Gastric disorder [None]
  - Fatigue [None]
  - Neuropathy peripheral [None]
